FAERS Safety Report 20946874 (Version 1)
Quarter: 2022Q2

REPORT INFORMATION
  Report Type: Spontaneous
  Country: CN (occurrence: CN)
  Receive Date: 20220610
  Receipt Date: 20220610
  Transmission Date: 20220721
  Serious: Yes (Hospitalization, Other)
  Sender: FDA-Public Use
  Company Number: None

PATIENT
  Age: 36 Year
  Sex: Male
  Weight: 57 kg

DRUGS (6)
  1. CYCLOPHOSPHAMIDE [Suspect]
     Active Substance: CYCLOPHOSPHAMIDE
     Indication: Diffuse large B-cell lymphoma stage IV
     Dosage: 1 G, QD, CYCLOPHOSPHAMIDE FOR INJECTION 1G + 0.9% SODIUM CHLORIDE INJECTION 500ML
     Route: 041
     Dates: start: 20220503, end: 20220503
  2. SODIUM CHLORIDE [Suspect]
     Active Substance: SODIUM CHLORIDE
     Indication: Medication dilution
     Dosage: 500 ML, QD, CYCLOPHOSPHAMIDE FOR INJECTION 1G + 0.9% SODIUM CHLORIDE INJECTION 500ML
     Route: 041
     Dates: start: 20220503, end: 20220503
  3. SODIUM CHLORIDE [Suspect]
     Active Substance: SODIUM CHLORIDE
     Dosage: 100 ML, QD, VINCRISTINE SULFATE FOR INJECTION 2MG + 0.9% SODIUM CHLORIDE INJECTION 100ML
     Route: 041
     Dates: start: 20220503, end: 20220503
  4. ANHYDROUS DEXTROSE [Suspect]
     Active Substance: ANHYDROUS DEXTROSE
     Indication: Medication dilution
     Dosage: 250 ML, QD,  PIRARUBICIN HYDROCHLORIDE FOR INJECTION 60MG + 5% GLUCOSE INJECTION 250M
     Route: 041
     Dates: start: 20220503, end: 20220503
  5. PIRARUBICIN HYDROCHLORIDE [Suspect]
     Active Substance: PIRARUBICIN HYDROCHLORIDE
     Indication: Diffuse large B-cell lymphoma stage IV
     Dosage: 60 MG, QD, PIRARUBICIN HYDROCHLORIDE FOR INJECTION 60MG + 5% GLUCOSE INJECTION 250ML
     Route: 041
     Dates: start: 20220503, end: 20220503
  6. VINCRISTINE SULFATE [Suspect]
     Active Substance: VINCRISTINE SULFATE
     Indication: Diffuse large B-cell lymphoma stage IV
     Dosage: 2 MG, QD, VINCRISTINE SULFATE FOR INJECTION 2MG + 0.9% SODIUM CHLORIDE INJECTION 100ML
     Route: 041
     Dates: start: 20220503, end: 20220503

REACTIONS (3)
  - White blood cell count decreased [Recovering/Resolving]
  - Neutrophil count decreased [Recovering/Resolving]
  - Myelosuppression [Unknown]

NARRATIVE: CASE EVENT DATE: 20220524
